FAERS Safety Report 7152803-0 (Version None)
Quarter: 2010Q4

REPORT INFORMATION
  Report Type: 
  Country: None (occurrence: None)
  Receive Date: 20101213
  Receipt Date: 20101129
  Transmission Date: 20110411
  Serious: Yes (Hospitalization)
  Sender: FDA-Public Use
  Company Number: PHHY2010JP82185

PATIENT
  Sex: Female

DRUGS (5)
  1. LEPONEX / CLOZARIL (CLOZAPINE) LEX+TAB [Suspect]
     Indication: SCHIZOPHRENIA
     Dosage: 12.5 MG
     Route: 048
     Dates: start: 20100204
  2. LEPONEX / CLOZARIL (CLOZAPINE) LEX+TAB [Suspect]
     Dosage: 600 MG DAILY
     Route: 048
     Dates: start: 20100318
  3. LEPONEX / CLOZARIL (CLOZAPINE) LEX+TAB [Suspect]
     Dosage: 500 MG DAILY
     Route: 048
     Dates: start: 20100408
  4. LEPONEX / CLOZARIL (CLOZAPINE) LEX+TAB [Suspect]
     Dosage: 400 MG DAILY
     Route: 048
     Dates: start: 20100422
  5. LEPONEX / CLOZARIL (CLOZAPINE) LEX+TAB [Suspect]
     Dosage: 600 MG DAILY
     Route: 048
     Dates: start: 20100429

REACTIONS (3)
  - COMPRESSION FRACTURE [None]
  - ROAD TRAFFIC ACCIDENT [None]
  - SALIVARY HYPERSECRETION [None]
